FAERS Safety Report 14419773 (Version 1)
Quarter: 2018Q1

REPORT INFORMATION
  Report Type: Spontaneous
  Country: US (occurrence: US)
  Receive Date: 20180122
  Receipt Date: 20180122
  Transmission Date: 20180509
  Serious: Yes (Hospitalization)
  Sender: FDA-Public Use
  Company Number: US-AMNEAL PHARMACEUTICALS-2018AMN00025

PATIENT
  Age: 62 Year
  Sex: Male
  Weight: 91.52 kg

DRUGS (2)
  1. WARFARIN SODIUM. [Suspect]
     Active Substance: WARFARIN SODIUM
     Indication: PULMONARY EMBOLISM
     Dosage: 5 MG, 1X/DAY
     Dates: start: 20171120, end: 20171123
  2. DALTEPARIN SODIUM [Suspect]
     Active Substance: DALTEPARIN SODIUM
     Indication: PULMONARY EMBOLISM
     Dosage: 15000 IU, 1X/DAY
     Route: 058
     Dates: start: 20170524, end: 20171120

REACTIONS (2)
  - Anticoagulation drug level above therapeutic [Recovered/Resolved]
  - Biloma [Not Recovered/Not Resolved]

NARRATIVE: CASE EVENT DATE: 20171124
